FAERS Safety Report 5574374-2 (Version None)
Quarter: 2007Q4

REPORT INFORMATION
  Report Type: 
  Country: None (occurrence: None)
  Receive Date: 20071221
  Receipt Date: 20071213
  Transmission Date: 20080405
  Serious: Yes (Hospitalization)
  Sender: FDA-Public Use
  Company Number: 2007SP024900

PATIENT
  Age: 67 Year
  Sex: Female
  Weight: 54.0234 kg

DRUGS (5)
  1. EPTIFIBATIDE (S-P) [Suspect]
     Indication: ANTICOAGULANT THERAPY
     Dosage: 3.5 ML; QH; IV
     Route: 042
     Dates: start: 20071116, end: 20071117
  2. CLOPIDOGREL [Suspect]
     Indication: PERCUTANEOUS CORONARY INTERVENTION
     Dosage: 4 DF; ONCE; PO
     Route: 048
     Dates: start: 20071116, end: 20071116
  3. CLOPIDOGREL [Suspect]
     Indication: PERCUTANEOUS CORONARY INTERVENTION
     Dosage: 4 DF; ONCE; PO
     Route: 048
     Dates: start: 20071116, end: 20071116
  4. HEPARIN [Suspect]
     Indication: ANTICOAGULANT THERAPY
  5. CLOPIDOGREL [Concomitant]

REACTIONS (4)
  - HAEMATOCRIT DECREASED [None]
  - HAEMOGLOBIN DECREASED [None]
  - POST PROCEDURAL COMPLICATION [None]
  - WOUND SECRETION [None]
